FAERS Safety Report 10369292 (Version 1)
Quarter: 2014Q1

REPORT INFORMATION
  Report Type: Spontaneous
  Country: US (occurrence: None)
  Receive Date: 20140306
  Receipt Date: 20140306
  Transmission Date: 20141002
  Serious: Yes (Other)
  Sender: FDA-Public Use
  Company Number: 163-21880-13024053

PATIENT
  Age: 62 Year
  Sex: Male

DRUGS (11)
  1. REVLIMID (LENALIDOMIDE) (25 MILLIGRAM, CAPSULES) [Suspect]
     Indication: PLASMA CELL MYELOMA
     Route: 048
     Dates: start: 20130205, end: 20130214
  2. ASA (ACETYLSALICYLIC ACID) (UNKNOWN) [Concomitant]
  3. ALLOPURINOL (ALLOPURINOL) (UNKNOWN) [Concomitant]
  4. CALCIUM (CALCIUM) (UNKNOWN) [Concomitant]
  5. CENTRUM SILVER (CENTRUM SILVER) (UNKNOWN) [Concomitant]
  6. COQ10 (UBIDECARENONE) (CAPSULES) [Concomitant]
  7. DEXAMETHASONE (DEXAMETHASONE) (UNKNOWN) [Concomitant]
  8. FENOFIBRATE (FENOFIBRATE) (UNKNOWN) [Concomitant]
  9. SYNTHROID (LEVOTHYROXINE SODIUM) (UNKNOWN) [Concomitant]
  10. VELCADE (BORTEZOMIB) (UNKNOWN) [Concomitant]
  11. TRANSFUSION (BLOOD TRANSFUSION, AUXILIARY PRODUCTS) (UNKNOWN) [Concomitant]

REACTIONS (1)
  - Platelet count decreased [None]
